FAERS Safety Report 20924431 (Version 4)
Quarter: 2022Q4

REPORT INFORMATION
  Report Type: Report from Study
  Country: US (occurrence: US)
  Receive Date: 20220607
  Receipt Date: 20221210
  Transmission Date: 20230113
  Serious: No
  Sender: FDA-Public Use
  Company Number: US-NOVARTISTESTPH-NVSC2022US129912

PATIENT
  Sex: Female

DRUGS (2)
  1. GLATIRAMER [Suspect]
     Active Substance: GLATIRAMER
     Indication: Product used for unknown indication
     Dosage: UNK
     Route: 065
     Dates: start: 202001
  2. GLATIRAMER [Suspect]
     Active Substance: GLATIRAMER
     Dosage: UNK
     Route: 065
     Dates: start: 20220606

REACTIONS (2)
  - Incorrect dose administered by device [Unknown]
  - Device issue [Unknown]
